FAERS Safety Report 9219089 (Version 1)
Quarter: 2013Q2

REPORT INFORMATION
  Report Type: Report from Study
  Country: CA (occurrence: CA)
  Receive Date: 20130409
  Receipt Date: 20130409
  Transmission Date: 20140414
  Serious: Yes (Other)
  Sender: FDA-Public Use
  Company Number: PHHY2013CA033374

PATIENT
  Age: 0 Year
  Sex: Female

DRUGS (2)
  1. CLOZARIL [Suspect]
     Indication: SCHIZOPHRENIA
     Dosage: UNK
     Route: 064
     Dates: start: 20051208
  2. CLOZARIL [Suspect]
     Dosage: 250 MG, QD
     Route: 064

REACTIONS (4)
  - Shoulder dystocia [Unknown]
  - Apgar score low [Recovered/Resolved]
  - Sedation [Recovered/Resolved]
  - Foetal exposure during pregnancy [Unknown]
